FAERS Safety Report 17072774 (Version 2)
Quarter: 2019Q4

REPORT INFORMATION
  Report Type: Spontaneous
  Country: BR (occurrence: BR)
  Receive Date: 20191125
  Receipt Date: 20191217
  Transmission Date: 20200122
  Serious: Yes (Hospitalization, Other)
  Sender: FDA-Public Use
  Company Number: NVSC2019BR027924

PATIENT
  Age: 48 Year
  Sex: Male
  Weight: 87 kg

DRUGS (3)
  1. REVOLADE [Suspect]
     Active Substance: ELTROMBOPAG
     Indication: PRODUCT USED FOR UNKNOWN INDICATION
     Dosage: (STRENGTH- 50 MG)
     Route: 048
     Dates: start: 20191015, end: 20191026
  2. SIMVASTATIN. [Suspect]
     Active Substance: SIMVASTATIN
     Indication: PRODUCT USED FOR UNKNOWN INDICATION
     Dosage: UNK
     Route: 065
  3. REVOLADE [Suspect]
     Active Substance: ELTROMBOPAG
     Dosage: (STRENGTH- 25 MG)
     Route: 048
     Dates: start: 20191026, end: 20191112

REACTIONS (8)
  - Amaurosis [Unknown]
  - Carotid artery thrombosis [Unknown]
  - Thrombocytopenia [Unknown]
  - Headache [Unknown]
  - Migraine [Unknown]
  - Retinal artery occlusion [Unknown]
  - Blindness [Unknown]
  - Carotid artery occlusion [Unknown]

NARRATIVE: CASE EVENT DATE: 20191017
